FAERS Safety Report 15315990 (Version 2)
Quarter: 2018Q3

REPORT INFORMATION
  Report Type: Report from Study
  Country: BR (occurrence: BR)
  Receive Date: 20180824
  Receipt Date: 20180919
  Transmission Date: 20181010
  Serious: Yes (Hospitalization)
  Sender: FDA-Public Use
  Company Number: PHHY2018BR078898

PATIENT
  Sex: Female
  Weight: 41 kg

DRUGS (2)
  1. RISPERIDONE. [Concomitant]
     Active Substance: RISPERIDONE
     Indication: PRODUCT USED FOR UNKNOWN INDICATION
     Dosage: 1 DF, Q12H (5 YEARS AGO)
     Route: 048
  2. RITALIN LA [Suspect]
     Active Substance: METHYLPHENIDATE HYDROCHLORIDE
     Indication: ATTENTION DEFICIT/HYPERACTIVITY DISORDER
     Dosage: 1 DF, QD (5 YEARS AGO)
     Route: 048

REACTIONS (3)
  - Aggression [Recovering/Resolving]
  - Agitation [Recovering/Resolving]
  - Psychomotor hyperactivity [Unknown]
